FAERS Safety Report 9141050 (Version 2)
Quarter: 2013Q1

REPORT INFORMATION
  Report Type: Spontaneous
  Country: CO (occurrence: CO)
  Receive Date: 20130305
  Receipt Date: 20130312
  Transmission Date: 20140127
  Serious: Yes (Other)
  Sender: FDA-Public Use
  Company Number: CO-BAXTER-2013BAX007506

PATIENT
  Age: 49 Year
  Sex: Female

DRUGS (4)
  1. SODIUM CHLORIDE [Suspect]
     Indication: INTRAVENOUS CATHETER MANAGEMENT
     Dates: start: 20130206, end: 20130206
  2. SODIUM CHLORIDE [Suspect]
     Dates: start: 20130206, end: 20130206
  3. LORATADINE [Suspect]
     Indication: HYPERSENSITIVITY
     Route: 048
     Dates: start: 20130206, end: 20130206
  4. ETHYLENE OXIDE [Suspect]
     Indication: HAEMODIALYSIS
     Route: 065
     Dates: start: 20130206, end: 20130206

REACTIONS (4)
  - Dermatitis allergic [Recovered/Resolved]
  - Laryngospasm [Recovered/Resolved]
  - Hypoaesthesia oral [Recovered/Resolved]
  - Oedema mouth [Recovered/Resolved]
